FAERS Safety Report 25263263 (Version 1)
Quarter: 2025Q2

REPORT INFORMATION
  Report Type: Spontaneous
  Country: US (occurrence: US)
  Receive Date: 20250502
  Receipt Date: 20250502
  Transmission Date: 20250716
  Serious: Yes (Hospitalization)
  Sender: MYLAN
  Company Number: US-MYLANLABS-2025M1035721

PATIENT
  Age: 36 Year
  Sex: Male

DRUGS (20)
  1. VORICONAZOLE [Interacting]
     Active Substance: VORICONAZOLE
     Indication: Aspergillus infection
  2. VORICONAZOLE [Interacting]
     Active Substance: VORICONAZOLE
     Indication: Aspergillus infection
     Route: 065
  3. VORICONAZOLE [Interacting]
     Active Substance: VORICONAZOLE
     Route: 065
  4. VORICONAZOLE [Interacting]
     Active Substance: VORICONAZOLE
  5. RIFABUTIN [Interacting]
     Active Substance: RIFABUTIN
     Indication: Meningitis tuberculous
  6. RIFABUTIN [Interacting]
     Active Substance: RIFABUTIN
     Indication: Bone tuberculosis
     Route: 065
  7. RIFABUTIN [Interacting]
     Active Substance: RIFABUTIN
     Route: 065
  8. RIFABUTIN [Interacting]
     Active Substance: RIFABUTIN
  9. ISAVUCONAZOLE [Interacting]
     Active Substance: ISAVUCONAZOLE
     Indication: Aspergillus infection
  10. ISAVUCONAZOLE [Interacting]
     Active Substance: ISAVUCONAZOLE
     Route: 065
  11. ISAVUCONAZOLE [Interacting]
     Active Substance: ISAVUCONAZOLE
     Route: 065
  12. ISAVUCONAZOLE [Interacting]
     Active Substance: ISAVUCONAZOLE
  13. ISONIAZID [Concomitant]
     Active Substance: ISONIAZID
     Indication: Meningitis tuberculous
     Dosage: 1200 MILLIGRAM, QD
  14. ISONIAZID [Concomitant]
     Active Substance: ISONIAZID
     Indication: Bone tuberculosis
     Dosage: 1200 MILLIGRAM, QD
     Route: 042
  15. ISONIAZID [Concomitant]
     Active Substance: ISONIAZID
     Dosage: 1200 MILLIGRAM, QD
     Route: 042
  16. ISONIAZID [Concomitant]
     Active Substance: ISONIAZID
     Dosage: 1200 MILLIGRAM, QD
  17. LEVOFLOXACIN [Concomitant]
     Active Substance: LEVOFLOXACIN
     Indication: Meningitis tuberculous
     Dosage: 750 MILLIGRAM, QD
  18. LEVOFLOXACIN [Concomitant]
     Active Substance: LEVOFLOXACIN
     Indication: Bone tuberculosis
     Dosage: 750 MILLIGRAM, QD
     Route: 042
  19. LEVOFLOXACIN [Concomitant]
     Active Substance: LEVOFLOXACIN
     Dosage: 750 MILLIGRAM, QD
     Route: 042
  20. LEVOFLOXACIN [Concomitant]
     Active Substance: LEVOFLOXACIN
     Dosage: 750 MILLIGRAM, QD

REACTIONS (2)
  - Drug interaction [Unknown]
  - Drug level abnormal [Unknown]
